FAERS Safety Report 7106045-5 (Version None)
Quarter: 2010Q4

REPORT INFORMATION
  Report Type: 
  Country: None (occurrence: None)
  Receive Date: 20101116
  Receipt Date: 20101109
  Transmission Date: 20110411
  Serious: Yes (Other)
  Sender: FDA-Public Use
  Company Number: US-PFIZER INC-2010144110

PATIENT
  Sex: Female
  Weight: 64 kg

DRUGS (6)
  1. CHANTIX [Suspect]
     Indication: SMOKING CESSATION THERAPY
     Dosage: 0.5 MG, 1X/DAY
     Dates: start: 20100910
  2. CHANTIX [Suspect]
     Dosage: 1 MG, 2X/DAY
     Route: 048
     Dates: start: 20101001
  3. CHANTIX [Suspect]
     Dosage: 1 MG, 2X/DAY
     Dates: start: 20101104
  4. COSMETICS [Suspect]
     Dosage: UNK
     Dates: end: 20101001
  5. LEXAPRO [Concomitant]
     Indication: ANXIETY
     Dosage: UNK
  6. KLONOPIN [Concomitant]
     Indication: ANXIETY
     Dosage: UNK

REACTIONS (3)
  - EYE SWELLING [None]
  - RASH [None]
  - SKIN EXFOLIATION [None]
